FAERS Safety Report 7460850-4 (Version None)
Quarter: 2011Q2

REPORT INFORMATION
  Report Type: 
  Country: None (occurrence: None)
  Receive Date: 20110505
  Receipt Date: 20110428
  Transmission Date: 20111010
  Serious: Yes (Hospitalization)
  Sender: FDA-Public Use
  Company Number: JP-CEPHALON-2011001243

PATIENT
  Age: 66 Year
  Sex: Male

DRUGS (1)
  1. BENDAMUSTINE HCL [Suspect]
     Indication: NON-HODGKIN'S LYMPHOMA RECURRENT
     Route: 041
     Dates: start: 20110224, end: 20110225

REACTIONS (3)
  - LYMPHOPENIA [None]
  - PSEUDOMEMBRANOUS COLITIS [None]
  - PNEUMONIA CYTOMEGALOVIRAL [None]
